FAERS Safety Report 14690294 (Version 2)
Quarter: 2018Q2

REPORT INFORMATION
  Report Type: Spontaneous
  Country: JP (occurrence: JP)
  Receive Date: 20180328
  Receipt Date: 20180406
  Transmission Date: 20180711
  Serious: Yes (Other)
  Sender: FDA-Public Use
  Company Number: JP-GILEAD-2018-0326161

PATIENT
  Sex: Male

DRUGS (5)
  1. SOVALDI [Suspect]
     Active Substance: SOFOSBUVIR
     Indication: HEPATITIS C
     Dosage: 400 MG, UNK
     Route: 048
     Dates: start: 20180308
  2. MEDROL [Concomitant]
     Active Substance: METHYLPREDNISOLONE
  3. CELLCEPT [Concomitant]
     Active Substance: MYCOPHENOLATE MOFETIL\MYCOPHENOLATE MOFETIL HYDROCHLORIDE
  4. REBETOL [Concomitant]
     Active Substance: RIBAVIRIN
     Indication: HEPATITIS C
     Dosage: UNK
     Route: 048
     Dates: start: 20180308
  5. NEORAL [Concomitant]
     Active Substance: CYCLOSPORINE

REACTIONS (4)
  - Intracranial aneurysm [Unknown]
  - Rheumatoid arthritis [Unknown]
  - Complex regional pain syndrome [Unknown]
  - Enterocolitis viral [Recovered/Resolved]

NARRATIVE: CASE EVENT DATE: 201803
